FAERS Safety Report 10362826 (Version 1)
Quarter: 2014Q3

REPORT INFORMATION
  Report Type: Report from Study
  Country: MA (occurrence: MA)
  Receive Date: 20140805
  Receipt Date: 20140805
  Transmission Date: 20150326
  Serious: Yes (Death, Hospitalization)
  Sender: FDA-Public Use
  Company Number: MA-SA-2014SA101083

PATIENT
  Sex: Female

DRUGS (5)
  1. APIDRA [Suspect]
     Active Substance: INSULIN GLULISINE
     Indication: TYPE 2 DIABETES MELLITUS
     Route: 058
     Dates: start: 20140515, end: 201407
  2. DAZEN [Suspect]
     Active Substance: SERRAPEPTASE
     Indication: PAIN
     Route: 048
     Dates: end: 201407
  3. DOLIPRANE [Suspect]
     Active Substance: ACETAMINOPHEN
     Indication: PAIN
     Route: 048
     Dates: end: 201407
  4. LANTUS [Suspect]
     Active Substance: INSULIN GLARGINE
     Indication: TYPE 2 DIABETES MELLITUS
     Route: 058
     Dates: start: 20140515, end: 201407
  5. SINTROM [Suspect]
     Active Substance: ACENOCOUMAROL
     Indication: PRODUCT USED FOR UNKNOWN INDICATION
     Route: 048
     Dates: end: 201407

REACTIONS (2)
  - Haemorrhage [Fatal]
  - Phlebitis [Unknown]

NARRATIVE: CASE EVENT DATE: 20140706
